FAERS Safety Report 7759465-X (Version None)
Quarter: 2011Q3

REPORT INFORMATION
  Report Type: 
  Country: None (occurrence: None)
  Receive Date: 20110919
  Receipt Date: 20110907
  Transmission Date: 20111222
  Serious: Yes (Hospitalization)
  Sender: FDA-Public Use
  Company Number: GB-ASTRAZENECA-2011SE53922

PATIENT
  Age: 43 Year
  Sex: Female

DRUGS (2)
  1. QUETIAPINE [Suspect]
     Route: 048
     Dates: start: 20090922, end: 20100125
  2. QUETIAPINE [Suspect]
     Indication: SCHIZOPHRENIA
     Route: 048
     Dates: start: 20090915, end: 20090921

REACTIONS (1)
  - PSYCHOTIC DISORDER [None]
